FAERS Safety Report 6057672-8 (Version None)
Quarter: 2009Q1

REPORT INFORMATION
  Report Type: 
  Country: None (occurrence: None)
  Receive Date: 20090129
  Receipt Date: 20080829
  Transmission Date: 20090719
  Serious: No
  Sender: FDA-Public Use
  Company Number: A0745208A

PATIENT
  Age: 43 Year
  Sex: Male

DRUGS (2)
  1. MEPRON [Suspect]
     Dosage: 5ML TWICE PER DAY
     Route: 048
     Dates: start: 20080801, end: 20080801
  2. AZITHROMYCIN [Concomitant]

REACTIONS (1)
  - VISUAL FIELD DEFECT [None]
